FAERS Safety Report 25509391 (Version 1)
Quarter: 2025Q3

REPORT INFORMATION
  Report Type: Spontaneous
  Country: US (occurrence: None)
  Receive Date: 20250702
  Receipt Date: 20250702
  Transmission Date: 20251020
  Serious: Yes (Hospitalization)
  Sender: FDA-CTU
  Company Number: None

PATIENT
  Sex: Male

DRUGS (11)
  1. XOLAIR [Suspect]
     Active Substance: OMALIZUMAB
     Indication: Asthma
     Dosage: INJECT 375 MG UNDER THE SKIN (SUBCUTANEOUS INJECTION) EVERY 2 WEEKS
     Route: 058
     Dates: start: 20250502
  2. BUTALBITAL AND ACETAMINOPHEN [Concomitant]
     Active Substance: ACETAMINOPHEN\BUTALBITAL
  3. DULOXETINE [Concomitant]
     Active Substance: DULOXETINE
  4. FAMOTIDINE [Concomitant]
     Active Substance: FAMOTIDINE
  5. FLUTICASONE SPR [Concomitant]
  6. FOLIC ACID [Concomitant]
     Active Substance: FOLIC ACID
  7. LEFLUNOMIDE [Concomitant]
     Active Substance: LEFLUNOMIDE
  8. LYRICA [Concomitant]
     Active Substance: PREGABALIN
  9. METHOTREXATE [Concomitant]
     Active Substance: METHOTREXATE
  10. MOUNJARO [Concomitant]
     Active Substance: TIRZEPATIDE
  11. NAPROXEN [Concomitant]
     Active Substance: NAPROXEN

REACTIONS (2)
  - Impaired quality of life [None]
  - Asthma [None]
